FAERS Safety Report 14238610 (Version 1)
Quarter: 2017Q4

REPORT INFORMATION
  Report Type: Spontaneous
  Country: US (occurrence: None)
  Receive Date: 20171129
  Receipt Date: 20171129
  Transmission Date: 20180321
  Serious: Yes (Hospitalization)
  Sender: FDA-Public Use
  Company Number: None

PATIENT
  Age: 95 Year
  Sex: Female
  Weight: 61.24 kg

DRUGS (11)
  1. CYPROHEPTADINE. [Concomitant]
     Active Substance: CYPROHEPTADINE
  2. HCTZ [Concomitant]
     Active Substance: HYDROCHLOROTHIAZIDE
  3. LETROZOLE. [Concomitant]
     Active Substance: LETROZOLE
  4. LATANOPROST. [Concomitant]
     Active Substance: LATANOPROST
  5. IBRANCE [Suspect]
     Active Substance: PALBOCICLIB
     Indication: BREAST CANCER FEMALE
     Dosage: 75 QD PO
     Route: 048
     Dates: start: 20171102
  6. NIFEDIPINE. [Concomitant]
     Active Substance: NIFEDIPINE
  7. ASA EC [Concomitant]
     Active Substance: ASPIRIN
  8. CLOPIDOGREL [Concomitant]
     Active Substance: CLOPIDOGREL BISULFATE
  9. TRIAMTERENE AND HYDROCHLOROTHIAZIDE [Concomitant]
     Active Substance: HYDROCHLOROTHIAZIDE\TRIAMTERENE
  10. BRIMONIDINE [Concomitant]
     Active Substance: BRIMONIDINE TARTRATE
  11. CLONIDINE. [Concomitant]
     Active Substance: CLONIDINE

REACTIONS (6)
  - Heart rate decreased [None]
  - Therapy change [None]
  - Seizure [None]
  - Dehydration [None]
  - Speech disorder [None]
  - Myocardial necrosis marker increased [None]

NARRATIVE: CASE EVENT DATE: 20171116
